FAERS Safety Report 4922494-5 (Version None)
Quarter: 2006Q1

REPORT INFORMATION
  Report Type: 
  Country: None (occurrence: None)
  Receive Date: 20060224
  Receipt Date: 20060130
  Transmission Date: 20060701
  Serious: Yes (Life-Threatening)
  Sender: FDA-Public Use
  Company Number: JP-ROCHE-434762

PATIENT
  Age: 6 Year
  Sex: Male
  Weight: 24 kg

DRUGS (4)
  1. TAMIFLU [Suspect]
     Route: 048
     Dates: start: 20060126, end: 20060126
  2. ASVERIN [Concomitant]
     Route: 048
     Dates: start: 20060126, end: 20060127
  3. MUCOSAL [Concomitant]
     Route: 048
     Dates: start: 20060126, end: 20060127
  4. PERIACTIN [Concomitant]
     Route: 048
     Dates: start: 20060126, end: 20060127

REACTIONS (2)
  - DELIRIUM FEBRILE [None]
  - HALLUCINATION [None]
